FAERS Safety Report 7557853-8 (Version None)
Quarter: 2011Q2

REPORT INFORMATION
  Report Type: 
  Country: None (occurrence: None)
  Receive Date: 20110620
  Receipt Date: 20110614
  Transmission Date: 20111010
  Serious: Yes (Hospitalization, Other)
  Sender: FDA-Public Use
  Company Number: AU-PFIZER INC-2011129328

PATIENT
  Age: 37 Year
  Sex: Male

DRUGS (4)
  1. OXYCONTIN [Suspect]
     Dosage: 100-300MG DAILY
     Route: 042
     Dates: start: 20030101
  2. MORPHINE [Suspect]
     Dosage: 100-300MG DAILY
     Route: 042
     Dates: start: 20030101
  3. METHADONE HCL [Suspect]
     Route: 042
  4. ALPRAZOLAM [Suspect]
     Route: 042

REACTIONS (2)
  - DRUG ABUSE [None]
  - LIVER INJURY [None]
